FAERS Safety Report 7199885-8 (Version None)
Quarter: 2010Q4

REPORT INFORMATION
  Report Type: 
  Country: None (occurrence: None)
  Receive Date: 20101215
  Receipt Date: 20101207
  Transmission Date: 20110411
  Serious: Yes (Other)
  Sender: FDA-Public Use
  Company Number: 2010MA005102

PATIENT
  Sex: Female

DRUGS (1)
  1. METOCLOPRAMIDE [Suspect]
     Dosage: ; PO
     Route: 048
     Dates: start: 20060601, end: 20100101

REACTIONS (3)
  - DYSTONIA [None]
  - RESTLESS LEGS SYNDROME [None]
  - TARDIVE DYSKINESIA [None]
